FAERS Safety Report 22623629 (Version 4)
Quarter: 2023Q4

REPORT INFORMATION
  Report Type: Report from Study
  Country: US (occurrence: US)
  Receive Date: 20230621
  Receipt Date: 20231013
  Transmission Date: 20240110
  Serious: Yes (Other)
  Sender: FDA-Public Use
  Company Number: US-ALNYLAM PHARMACEUTICALS, INC.-ALN-2023-002819

PATIENT

DRUGS (22)
  1. ONPATTRO [Suspect]
     Active Substance: PATISIRAN SODIUM
     Indication: Cardiac amyloidosis
     Dosage: 30 MILLIGRAM, Q3W
     Route: 042
     Dates: start: 20230523, end: 20230613
  2. BENADRYL [Concomitant]
     Active Substance: DIPHENHYDRAMINE HYDROCHLORIDE
     Indication: Premedication
     Dosage: 25 MILLIGRAM
     Route: 048
     Dates: start: 20230613
  3. BENADRYL [Concomitant]
     Active Substance: DIPHENHYDRAMINE HYDROCHLORIDE
     Dosage: 25 MILLIGRAM, SINGLE
     Route: 042
  4. PEPCID [Concomitant]
     Active Substance: FAMOTIDINE
     Indication: Premedication
     Dosage: 20 MILLIGRAM
     Route: 042
     Dates: start: 20230613
  5. DEXAMETHASONE [Concomitant]
     Active Substance: DEXAMETHASONE
     Indication: Premedication
     Dosage: 10 MILLIGRAM, SINGLE
     Route: 042
     Dates: start: 20230613
  6. ACETAMINOPHEN [Concomitant]
     Active Substance: ACETAMINOPHEN
     Indication: Premedication
     Dosage: 500 MILLIGRAM
     Route: 048
     Dates: start: 20230613
  7. CLOTRIMAZOLE [Concomitant]
     Active Substance: CLOTRIMAZOLE
     Indication: Fungal infection
     Dosage: UNK, TID
     Route: 061
     Dates: start: 20220223
  8. ASTELIN [Concomitant]
     Active Substance: AZELASTINE HYDROCHLORIDE
     Indication: Hypersensitivity
     Dosage: 2 SPRAY, BID PRN
     Route: 045
     Dates: start: 20210719
  9. ZYRTEC [Concomitant]
     Active Substance: CETIRIZINE HYDROCHLORIDE
     Indication: Hypersensitivity
     Dosage: 10 MILLIGRAM QD PRN
     Route: 048
     Dates: start: 20210909
  10. CHOLECALCIFEROL [Concomitant]
     Active Substance: CHOLECALCIFEROL
     Indication: Vitamin D deficiency
     Dosage: 5000 INTERNATIONAL UNIT, QD
     Route: 048
     Dates: start: 20201102
  11. ELIQUIS [Concomitant]
     Active Substance: APIXABAN
     Indication: Atrial fibrillation
     Dosage: 1 TABLET (5 MILLIGRAM), BID
     Route: 048
     Dates: start: 20230310
  12. ELIQUIS [Concomitant]
     Active Substance: APIXABAN
     Dosage: 1 TABLET (5 MILLIGRAM), BID
     Route: 048
     Dates: start: 20230510
  13. TEA LEAF [Concomitant]
     Active Substance: TEA LEAF
     Indication: Amyloidosis
     Dosage: 400 MILLIGRAM, QD
     Route: 048
     Dates: start: 20230320
  14. TOPROL XL [Concomitant]
     Active Substance: METOPROLOL SUCCINATE
     Indication: Atrial fibrillation
     Dosage: 100 MILLIGRAM, QD
     Route: 048
     Dates: start: 2008
  15. ELOCON [Concomitant]
     Active Substance: MOMETASONE FUROATE
     Indication: Eczema
     Dosage: UNK, PRN
     Route: 061
     Dates: start: 20210118
  16. ZOCOR [Concomitant]
     Active Substance: SIMVASTATIN
     Indication: Blood cholesterol increased
     Dosage: 80 MILLIGRAM, QD
     Route: 048
     Dates: start: 20230213
  17. CIALIS [Concomitant]
     Active Substance: TADALAFIL
     Indication: Erectile dysfunction
     Dosage: 5 MILLIGRAM, QD
     Route: 048
     Dates: start: 20220222, end: 20230620
  18. KENALOG [Concomitant]
     Active Substance: TRIAMCINOLONE ACETONIDE
     Indication: Eczema
     Dosage: UNK, PRN
     Route: 061
     Dates: start: 20220223
  19. VYNDAMAX [Concomitant]
     Active Substance: TAFAMIDIS
     Indication: Hereditary neuropathic amyloidosis
     Dosage: 61 MILLIGRAM, QD
     Route: 048
     Dates: start: 20230605, end: 20230626
  20. LASIX [Concomitant]
     Active Substance: FUROSEMIDE
     Indication: Cardiac failure
     Dosage: 20 MILLIGRAM, M, W, F
     Route: 048
     Dates: start: 20230404, end: 20230504
  21. LASIX [Concomitant]
     Active Substance: FUROSEMIDE
     Dosage: 40 MILLIGRAM, QD
     Route: 048
     Dates: start: 20230505
  22. PREDNISONE [Concomitant]
     Active Substance: PREDNISONE
     Indication: Gout
     Dosage: 10 MILLIGRAM, QD
     Route: 048
     Dates: start: 20230513, end: 20230516

REACTIONS (9)
  - Angioedema [Recovered/Resolved]
  - Infusion related reaction [Recovered/Resolved]
  - Throat tightness [Recovered/Resolved]
  - Nausea [Recovered/Resolved]
  - Sensation of foreign body [Recovered/Resolved]
  - Salivary hypersecretion [Recovered/Resolved]
  - Tachycardia [Recovered/Resolved]
  - Macroglossia [Recovered/Resolved]
  - Headache [Recovered/Resolved]

NARRATIVE: CASE EVENT DATE: 20230613
